FAERS Safety Report 8879122 (Version 1)
Quarter: 2012Q4

REPORT INFORMATION
  Report Type: Spontaneous
  Country: US (occurrence: None)
  Receive Date: 20121031
  Receipt Date: 20121031
  Transmission Date: 20130627
  Serious: No
  Sender: FDA-Public Use
  Company Number: None

PATIENT
  Age: 69 Year
  Sex: Male
  Weight: 92.6 kg

DRUGS (1)
  1. ASPIRIN [Suspect]
     Indication: PREVENTION
     Route: 048
     Dates: start: 20080114

REACTIONS (5)
  - Rectal haemorrhage [None]
  - Flatulence [None]
  - Flatulence [None]
  - Constipation [None]
  - Gastric haemorrhage [None]
